FAERS Safety Report 5118301-0 (Version None)
Quarter: 2006Q4

REPORT INFORMATION
  Report Type: 
  Country: None (occurrence: None)
  Receive Date: 20061002
  Receipt Date: 20060831
  Transmission Date: 20070319
  Serious: No
  Sender: FDA-Public Use
  Company Number: US-BRISTOL-MYERS SQUIBB COMPANY-13494513

PATIENT
  Age: 62 Year
  Sex: Female
  Weight: 122 kg

DRUGS (13)
  1. ORENCIA [Suspect]
     Indication: RHEUMATOID ARTHRITIS
     Dosage: ADDITIONAL LOT #: MTK524A, EXP 31-AUG-2007
     Route: 042
     Dates: start: 20060420
  2. PREDNISONE [Concomitant]
  3. AMITRIPTYLINE HCL [Concomitant]
  4. TORSEMIDE [Concomitant]
  5. PREVACID [Concomitant]
  6. METOPROLOL [Concomitant]
  7. GABAPENTIN [Concomitant]
  8. GLIPIZIDE [Concomitant]
  9. ACTOS [Concomitant]
  10. POTASSIUM [Concomitant]
  11. FENTANYL [Concomitant]
  12. TRAMADOL HCL [Concomitant]
  13. ATROVENT [Concomitant]

REACTIONS (1)
  - DRUG EFFECT DECREASED [None]
